FAERS Safety Report 6988699-7 (Version None)
Quarter: 2010Q3

REPORT INFORMATION
  Report Type: 
  Country: None (occurrence: None)
  Receive Date: 20100916
  Receipt Date: 20100907
  Transmission Date: 20110219
  Serious: Yes (Other)
  Sender: FDA-Public Use
  Company Number: US-ELI_LILLY_AND_COMPANY-US201009002114

PATIENT
  Sex: Female

DRUGS (2)
  1. HUMULIN R [Suspect]
     Indication: DIABETES MELLITUS
     Dosage: UNK, AS NEEDED
  2. HUMULIN N [Suspect]
     Indication: DIABETES MELLITUS
     Dosage: 40 U, DAILY (1/D)

REACTIONS (7)
  - ALLERGY TO METALS [None]
  - ANKLE FRACTURE [None]
  - BLOOD GLUCOSE FLUCTUATION [None]
  - BLOOD GLUCOSE INCREASED [None]
  - FALL [None]
  - INTENTIONAL DRUG MISUSE [None]
  - WEIGHT DECREASED [None]
